FAERS Safety Report 6088711-6 (Version None)
Quarter: 2009Q1

REPORT INFORMATION
  Report Type: 
  Country: None (occurrence: None)
  Receive Date: 20090224
  Receipt Date: 20090219
  Transmission Date: 20090719
  Serious: Yes (Hospitalization)
  Sender: FDA-Public Use
  Company Number: JP-ASTRAZENECA-2009AP01324

PATIENT
  Age: 81 Year
  Sex: Male
  Weight: 74 kg

DRUGS (17)
  1. CRESTOR [Suspect]
     Indication: HYPERLIPIDAEMIA
     Route: 048
     Dates: start: 20090128, end: 20090205
  2. ASPIRIN [Concomitant]
     Dosage: DOSE UNKNOWN
     Route: 048
  3. OLMETEC [Concomitant]
     Dosage: DOSE UNKNOWN
     Route: 048
  4. ARTIST [Concomitant]
     Dosage: DOSE UNKNOWN
     Route: 048
  5. SOLANAX [Concomitant]
     Dosage: DOSE UNKNOWN
     Route: 048
  6. SIGMART [Concomitant]
     Dosage: DOSE UNKNOWN
     Route: 048
  7. MEVALOTIN [Concomitant]
     Dosage: DOSE UNKNOWN
     Route: 048
  8. EPADEL [Concomitant]
     Dosage: DOSE UNKNOWN
     Route: 048
  9. LUPRAC [Concomitant]
     Dosage: DOSE UNKNOWN
     Route: 048
  10. HERBESSER [Concomitant]
     Dosage: DOSE UNKNOWN
     Route: 048
  11. ITOROL [Concomitant]
     Dosage: DOSE UNKNOWN
     Route: 048
  12. HOKUNALIN:TAPE [Concomitant]
     Dosage: DOSE UNKNOWN
     Route: 062
  13. MEDICON [Concomitant]
     Dosage: DOSE UNKNOWN
     Route: 048
  14. HUSTAGIN [Concomitant]
     Dosage: DOSE UNKNOWN
     Route: 048
  15. GENINAX [Concomitant]
     Dosage: DOSE UNKNOWN
     Route: 048
  16. MUCOSOLVAN [Concomitant]
     Dosage: DOSE UNKNOWN
     Route: 048
  17. METHYLEPHEDRINE [Concomitant]
     Dosage: DOSE UNKNOWN
     Route: 048

REACTIONS (1)
  - RENAL IMPAIRMENT [None]
